FAERS Safety Report 10646732 (Version 1)
Quarter: 2014Q4

REPORT INFORMATION
  Report Type: Spontaneous
  Country: FI (occurrence: FI)
  Receive Date: 20141211
  Receipt Date: 20141211
  Transmission Date: 20150529
  Serious: Yes (Other)
  Sender: FDA-Public Use
  Company Number: FI-PFIZER INC-2014337664

PATIENT
  Age: 40 Year
  Sex: Female

DRUGS (1)
  1. LYRICA [Suspect]
     Active Substance: PREGABALIN
     Dosage: UNK

REACTIONS (10)
  - Amnesia [Unknown]
  - Akinesia [Unknown]
  - Migraine [Unknown]
  - Weight increased [Unknown]
  - Hypersomnia [Unknown]
  - Anxiety [Unknown]
  - Vomiting [Unknown]
  - Feeling abnormal [Unknown]
  - Hypothyroidism [Unknown]
  - Heart rate increased [Unknown]
